FAERS Safety Report 7842179-5 (Version None)
Quarter: 2011Q4

REPORT INFORMATION
  Report Type: 
  Country: None (occurrence: None)
  Receive Date: 20111024
  Receipt Date: 20111024
  Transmission Date: 20120403
  Serious: Yes (Other)
  Sender: FDA-Public Use
  Company Number: None

PATIENT
  Age: 44 Year
  Sex: Female
  Weight: 68.0396 kg

DRUGS (1)
  1. VALTREX [Suspect]
     Indication: LYME DISEASE
     Dosage: 1 1 MOUTH
     Route: 048
     Dates: start: 20110901

REACTIONS (6)
  - VOMITING [None]
  - PAROSMIA [None]
  - DIZZINESS [None]
  - AFFECTIVE DISORDER [None]
  - HEADACHE [None]
  - NAUSEA [None]
